FAERS Safety Report 4319065-0 (Version None)
Quarter: 2004Q1

REPORT INFORMATION
  Report Type: 
  Country: None (occurrence: None)
  Receive Date: 20040316
  Receipt Date: 20040303
  Transmission Date: 20041129
  Serious: Yes (Hospitalization, Other)
  Sender: FDA-Public Use
  Company Number: CA-JNJFOC-20040301259

PATIENT
  Age: 56 Year
  Sex: Male

DRUGS (6)
  1. INFLIXIMAB (INFLIXIMAB, RECOMBINANT) LYOPHILIZED POWDER [Suspect]
     Indication: PSORIATIC ARTHROPATHY
     Dosage: 5 MG/KG, INTRAVENOUS; 5 MG/KG, INTRAVENOUS
     Route: 042
     Dates: start: 20020105
  2. INFLIXIMAB (INFLIXIMAB, RECOMBINANT) LYOPHILIZED POWDER [Suspect]
     Indication: PSORIATIC ARTHROPATHY
     Dosage: 5 MG/KG, INTRAVENOUS; 5 MG/KG, INTRAVENOUS
     Route: 042
     Dates: start: 20031210
  3. PLACEBO (PLACEBO) LYOPHILIZED POWDER [Suspect]
     Indication: PSORIATIC ARTHROPATHY
     Dosage: 5 MG/KG, INTRAVENOUS
     Route: 042
     Dates: start: 20020105, end: 20020501
  4. METHOTREXATE [Concomitant]
  5. FOLIC ACID [Concomitant]
  6. FELDENE [Concomitant]

REACTIONS (4)
  - ADENOCARCINOMA PANCREAS [None]
  - HEPATIC STEATOSIS [None]
  - LYMPHADENOPATHY [None]
  - METASTASES TO LUNG [None]
